FAERS Safety Report 16218230 (Version 2)
Quarter: 2019Q2

REPORT INFORMATION
  Report Type: Report from Study
  Country: GB (occurrence: GB)
  Receive Date: 20190419
  Receipt Date: 20190502
  Transmission Date: 20190711
  Serious: Yes (Death, Other)
  Sender: FDA-Public Use
  Company Number: GB-OTSUKA-2019_000532AA

PATIENT
  Age: 68 Year
  Sex: Female

DRUGS (1)
  1. DECITABINE. [Suspect]
     Active Substance: DECITABINE
     Indication: ACUTE MYELOID LEUKAEMIA
     Dosage: UNK
     Route: 042
     Dates: start: 20181218

REACTIONS (4)
  - Pneumonia [Fatal]
  - Decreased appetite [Recovered/Resolved]
  - Urinary incontinence [Recovered/Resolved]
  - Left ventricular failure [Fatal]

NARRATIVE: CASE EVENT DATE: 20190106
